FAERS Safety Report 6862048-7 (Version None)
Quarter: 2010Q3

REPORT INFORMATION
  Report Type: 
  Country: None (occurrence: None)
  Receive Date: 20100706
  Receipt Date: 20100621
  Transmission Date: 20110219
  Serious: Yes (Hospitalization, Other)
  Sender: FDA-Public Use
  Company Number: AEUSA201000229

PATIENT
  Age: 50 Year
  Sex: Male

DRUGS (3)
  1. PROLASTIN-C [Suspect]
     Indication: ALPHA-1 ANTI-TRYPSIN DEFICIENCY
     Dosage: 8000 MG; QW; IV
     Route: 042
     Dates: start: 20100507
  2. PROLASTIN [Suspect]
     Indication: ALPHA-1 ANTI-TRYPSIN DEFICIENCY
     Dosage: 8000 MG; QW; IV
     Route: 042
     Dates: start: 20080101, end: 20100501
  3. HEPARIN [Concomitant]

REACTIONS (5)
  - CHEST PAIN [None]
  - MEDICAL DEVICE COMPLICATION [None]
  - NECK PAIN [None]
  - OEDEMA PERIPHERAL [None]
  - VENOUS THROMBOSIS LIMB [None]
